FAERS Safety Report 7242265-7 (Version None)
Quarter: 2011Q1

REPORT INFORMATION
  Report Type: 
  Country: None (occurrence: None)
  Receive Date: 20110125
  Receipt Date: 20110111
  Transmission Date: 20110831
  Serious: Yes (Other)
  Sender: FDA-Public Use
  Company Number: PT-BAYER-2011-003062

PATIENT

DRUGS (1)
  1. IOPROMIDE [Suspect]

REACTIONS (1)
  - EMBOLISM ARTERIAL [None]
